FAERS Safety Report 5678065-9 (Version None)
Quarter: 2008Q1

REPORT INFORMATION
  Report Type: 
  Country: None (occurrence: None)
  Receive Date: 20080324
  Receipt Date: 20080324
  Transmission Date: 20080703
  Serious: Yes (Life-Threatening)
  Sender: FDA-Public Use
  Company Number: None

PATIENT
  Age: 37 Year
  Sex: Male
  Weight: 81.6475 kg

DRUGS (1)
  1. ACCUTANE [Suspect]
     Indication: ACNE
     Dosage: 2 PER DAY
     Dates: start: 19950101, end: 19950829

REACTIONS (10)
  - BRAIN INJURY [None]
  - CARDIAC DISORDER [None]
  - CEREBROVASCULAR ACCIDENT [None]
  - FACIAL PAIN [None]
  - MENTAL DISORDER [None]
  - MIGRAINE [None]
  - NERVOUS SYSTEM DISORDER [None]
  - POISONING [None]
  - SKIN DISORDER [None]
  - SUICIDAL IDEATION [None]
